FAERS Safety Report 4552905-9 (Version None)
Quarter: 2005Q1

REPORT INFORMATION
  Report Type: 
  Country: None (occurrence: None)
  Receive Date: 20050114
  Receipt Date: 20050105
  Transmission Date: 20050727
  Serious: Yes (Death, Hospitalization)
  Sender: FDA-Public Use
  Company Number: JP-JNJFOC-20050100968

PATIENT
  Age: 90 Year
  Sex: Female

DRUGS (9)
  1. OFLOCET [Suspect]
     Route: 042
     Dates: start: 20040915, end: 20041109
  2. OFLOCET [Suspect]
     Indication: OSTEITIS
     Route: 042
     Dates: start: 20040915, end: 20041109
  3. AMOXICILLIN [Suspect]
     Indication: OSTEITIS
     Route: 049
  4. DI-ANTALVIC [Concomitant]
     Route: 049
  5. DI-ANTALVIC [Concomitant]
     Route: 049
  6. LASILIX [Concomitant]
     Route: 049
  7. TRIATEC [Concomitant]
     Route: 049
  8. FONZYLANE [Concomitant]
     Route: 049
  9. ATHYMIL [Concomitant]
     Route: 049

REACTIONS (11)
  - ABDOMINAL ABSCESS [None]
  - ABDOMINAL DISTENSION [None]
  - ABDOMINAL PAIN [None]
  - BLOOD CREATININE INCREASED [None]
  - BLOOD UREA INCREASED [None]
  - COLITIS [None]
  - DIARRHOEA [None]
  - DRUG INTERACTION [None]
  - HYPERKALAEMIA [None]
  - HYPOTENSION [None]
  - SIGMOIDITIS [None]
